FAERS Safety Report 9886609 (Version 2)
Quarter: 2014Q1

REPORT INFORMATION
  Report Type: Report from Study
  Country: US (occurrence: US)
  Receive Date: 20140210
  Receipt Date: 20140210
  Transmission Date: 20141002
  Serious: Yes (Other)
  Sender: FDA-Public Use
  Company Number: US-ABBVIE-10P-163-0667864-00

PATIENT
  Age: 28 Year
  Sex: Female
  Weight: 64 kg

DRUGS (7)
  1. HUMIRA [Suspect]
     Indication: CROHN^S DISEASE
     Route: 058
     Dates: start: 20070901
  2. CILEST [Concomitant]
     Indication: CONTRACEPTION
     Dates: start: 2005
  3. PAXIL [Concomitant]
     Indication: ABDOMINAL PAIN
     Dates: start: 2008
  4. PAXIL [Concomitant]
     Indication: CROHN^S DISEASE
  5. HYDROCODONE/IBUPROFEN [Concomitant]
     Indication: PROCEDURAL PAIN
     Dates: start: 2009
  6. HYDROCODONE/IBUPROFEN [Concomitant]
     Indication: ARTHRALGIA
  7. IMURAN [Concomitant]
     Indication: CROHN^S DISEASE
     Dates: start: 2004

REACTIONS (1)
  - Basal cell carcinoma [Recovered/Resolved]
